FAERS Safety Report 5622248-0 (Version None)
Quarter: 2008Q1

REPORT INFORMATION
  Report Type: 
  Country: None (occurrence: None)
  Receive Date: 20080211
  Receipt Date: 20080130
  Transmission Date: 20080703
  Serious: Yes (Hospitalization)
  Sender: FDA-Public Use
  Company Number: FR-ROCHE-544777

PATIENT
  Sex: Male
  Weight: 2.2 kg

DRUGS (5)
  1. VALIUM [Suspect]
     Dates: start: 20061109, end: 20061109
  2. CLONAZEPAM [Suspect]
     Dates: start: 20061109, end: 20061109
  3. EPITOMAX [Suspect]
     Indication: DRUG USE FOR UNKNOWN INDICATION
     Dates: end: 20061109
  4. URBANYL [Suspect]
     Indication: DRUG USE FOR UNKNOWN INDICATION
     Dates: end: 20061109
  5. TRILEPTAL [Suspect]
     Indication: DRUG USE FOR UNKNOWN INDICATION
     Dates: end: 20061109

REACTIONS (5)
  - APNOEA [None]
  - BRADYCARDIA [None]
  - DECREASED ACTIVITY [None]
  - HYPOTONIA [None]
  - NEONATAL RESPIRATORY DISTRESS SYNDROME [None]
